FAERS Safety Report 17225717 (Version 1)
Quarter: 2020Q1

REPORT INFORMATION
  Report Type: Report from Study
  Country: CA (occurrence: CA)
  Receive Date: 20200102
  Receipt Date: 20200102
  Transmission Date: 20200409
  Serious: No
  Sender: FDA-Public Use
  Company Number: CA-TOLMAR, INC.-19CA001308

PATIENT
  Age: 73 Year
  Sex: Male

DRUGS (1)
  1. ELIGARD [Suspect]
     Active Substance: LEUPROLIDE ACETATE
     Indication: PROSTATE CANCER
     Dosage: 30 MG Q4MONTHS
     Route: 058
     Dates: start: 20171109

REACTIONS (4)
  - Needle issue [None]
  - Intercepted product preparation error [None]
  - Device leakage [None]
  - Device breakage [None]

NARRATIVE: CASE EVENT DATE: 20191128
